FAERS Safety Report 11971660 (Version 1)
Quarter: 2016Q1

REPORT INFORMATION
  Report Type: Spontaneous
  Country: None (occurrence: FR)
  Receive Date: 20160128
  Receipt Date: 20160128
  Transmission Date: 20160526
  Serious: Yes (Death, Congenital Anomaly, Other)
  Sender: FDA-Public Use
  Company Number: FR-MERCK KGAA-1047017

PATIENT

DRUGS (1)
  1. NOVOTHYROX [Suspect]
     Active Substance: LEVOTHYROXINE SODIUM

REACTIONS (8)
  - Renal dysplasia [None]
  - Renal hypertrophy [None]
  - Uterine disorder [None]
  - Potter^s syndrome [None]
  - Bladder disorder [None]
  - Foetal exposure during pregnancy [None]
  - Pulmonary hypoplasia [None]
  - Maternal drugs affecting foetus [None]
